FAERS Safety Report 10845832 (Version 1)
Quarter: 2015Q1

REPORT INFORMATION
  Report Type: Report from Study
  Country: US (occurrence: US)
  Receive Date: 20150220
  Receipt Date: 20150220
  Transmission Date: 20150721
  Serious: No
  Sender: FDA-Public Use
  Company Number: US-ABBVIE-14P-163-1308574-00

PATIENT
  Age: 38 Year
  Sex: Female
  Weight: 77.2 kg

DRUGS (9)
  1. PRENATAL VITAMINS [Concomitant]
     Active Substance: VITAMINS
     Indication: PRODUCT USED FOR UNKNOWN INDICATION
     Route: 048
     Dates: start: 20100214, end: 20101030
  2. HYDROXYCUT [Concomitant]
     Active Substance: HERBALS
     Indication: WEIGHT DECREASED
     Route: 048
     Dates: start: 20100214, end: 20100316
  3. TYLENOL [Concomitant]
     Active Substance: ACETAMINOPHEN
     Indication: HEADACHE
     Route: 048
     Dates: start: 20100414, end: 20100817
  4. CILOXAN [Concomitant]
     Active Substance: CIPROFLOXACIN HYDROCHLORIDE
     Indication: EYE INFECTION
     Route: 061
     Dates: start: 20100819, end: 20100823
  5. COLACE [Concomitant]
     Active Substance: DOCUSATE SODIUM
     Indication: CONSTIPATION PROPHYLAXIS
     Dosage: 4.5 PER WEEK
     Route: 048
     Dates: start: 20100410, end: 20101030
  6. HUMIRA [Suspect]
     Active Substance: ADALIMUMAB
     Indication: PSORIATIC ARTHROPATHY
     Route: 065
     Dates: start: 20100214, end: 20100823
  7. MICONAZOLE [Concomitant]
     Active Substance: MICONAZOLE
     Indication: FUNGAL INFECTION
     Dosage: ROUTE TOPICAL VAGINAL
     Dates: start: 20100831, end: 20100909
  8. CALCIUM [Concomitant]
     Active Substance: CALCIUM
     Indication: PRODUCT USED FOR UNKNOWN INDICATION
     Route: 048
     Dates: start: 20100717, end: 20101030
  9. INFLUENZA VACCINE H1N1 [Concomitant]
     Indication: INFLUENZA IMMUNISATION
     Route: 050
     Dates: start: 20101014, end: 20101014

REACTIONS (4)
  - Pyrexia [Recovered/Resolved]
  - Eye infection [Recovered/Resolved]
  - Respiratory tract infection [Recovered/Resolved]
  - Fungal infection [Recovered/Resolved]

NARRATIVE: CASE EVENT DATE: 20100316
